FAERS Safety Report 14138220 (Version 2)
Quarter: 2017Q4

REPORT INFORMATION
  Report Type: Report from Study
  Country: BE (occurrence: BE)
  Receive Date: 20171027
  Receipt Date: 20171206
  Transmission Date: 20180321
  Serious: Yes (Hospitalization)
  Sender: FDA-Public Use
  Company Number: BE-PFIZER INC-2017453558

PATIENT
  Age: 63 Year
  Sex: Female
  Weight: 89 kg

DRUGS (6)
  1. KEPPRA [Concomitant]
     Active Substance: LEVETIRACETAM
     Indication: EPILEPSY
     Dosage: 750 MG, UNK
     Route: 048
     Dates: start: 20170703
  2. AUGMENTIN [Concomitant]
     Active Substance: AMOXICILLIN\CLAVULANATE POTASSIUM
     Indication: URINARY TRACT INFECTION
     Dosage: 875 MG, 2X/DAY
     Route: 048
     Dates: start: 20171011, end: 20171016
  3. INLYTA [Suspect]
     Active Substance: AXITINIB
     Indication: GLIOBLASTOMA
     Dosage: 5 MG, 2X/DAY
     Dates: start: 20170731, end: 20171011
  4. DIFLUCAN [Concomitant]
     Active Substance: FLUCONAZOLE
     Indication: URINARY TRACT INFECTION
     Dosage: 200 MG, UNK
     Route: 048
     Dates: start: 20171011, end: 20171016
  5. INLYTA [Suspect]
     Active Substance: AXITINIB
     Dosage: 3 MG, 2X/DAY
     Dates: start: 20171012, end: 20171017
  6. MEDROL [Concomitant]
     Active Substance: METHYLPREDNISOLONE
     Indication: BRAIN OEDEMA
     Dosage: 8 MG, UNK
     Route: 048
     Dates: start: 20170922

REACTIONS (2)
  - Headache [Not Recovered/Not Resolved]
  - Neurological decompensation [Not Recovered/Not Resolved]

NARRATIVE: CASE EVENT DATE: 20171017
